FAERS Safety Report 12771555 (Version 1)
Quarter: 2016Q3

REPORT INFORMATION
  Report Type: Report from Study
  Country: US (occurrence: US)
  Receive Date: 20160922
  Receipt Date: 20160922
  Transmission Date: 20161109
  Serious: No
  Sender: FDA-Public Use
  Company Number: US-AMGEN-USASL2016067064

PATIENT

DRUGS (2)
  1. NEUPOGEN [Suspect]
     Active Substance: FILGRASTIM
     Indication: MYELODYSPLASTIC SYNDROME
     Dosage: UNK
     Route: 065
  2. DACOGEN [Concomitant]
     Active Substance: DECITABINE
     Indication: MYELODYSPLASTIC SYNDROME

REACTIONS (1)
  - Off label use [Unknown]
